FAERS Safety Report 6747463-4 (Version None)
Quarter: 2010Q2

REPORT INFORMATION
  Report Type: 
  Country: None (occurrence: None)
  Receive Date: 20100528
  Receipt Date: 20100521
  Transmission Date: 20101027
  Serious: Yes (Other)
  Sender: FDA-Public Use
  Company Number: US-MERCK-1005USA03867

PATIENT
  Age: 58 Year
  Sex: Female

DRUGS (6)
  1. SINGULAIR [Suspect]
     Indication: ASTHMA
     Route: 048
  2. SINGULAIR [Suspect]
     Indication: COUGH
     Route: 048
  3. COMBIVENT [Suspect]
     Indication: ASTHMA
     Route: 065
  4. COMBIVENT [Suspect]
     Indication: COUGH
     Route: 065
  5. ADVAIR DISKUS 100/50 [Concomitant]
     Indication: ASTHMA
     Route: 065
  6. ADVAIR DISKUS 100/50 [Concomitant]
     Indication: COUGH
     Route: 065

REACTIONS (5)
  - COUGH [None]
  - LIBIDO DECREASED [None]
  - MUSCLE SPASMS [None]
  - SPUTUM INCREASED [None]
  - SUICIDAL IDEATION [None]
